FAERS Safety Report 15012258 (Version 1)
Quarter: 2018Q2

REPORT INFORMATION
  Report Type: Spontaneous
  Country: GB (occurrence: GB)
  Receive Date: 20180614
  Receipt Date: 20180614
  Transmission Date: 20180711
  Serious: Yes (Life-Threatening, Hospitalization)
  Sender: FDA-Public Use
  Company Number: GB-MYLANLABS-2018M1039654

PATIENT
  Age: 59 Year
  Sex: Female

DRUGS (2)
  1. GENTAMICIN. [Suspect]
     Active Substance: GENTAMICIN
     Indication: WOUND INFECTION
     Route: 042
  2. CLINDAMYCIN. [Suspect]
     Active Substance: CLINDAMYCIN
     Indication: WOUND INFECTION
     Dosage: 600 MG THREE TIMES DAILY
     Route: 065

REACTIONS (2)
  - Gastrointestinal bacterial overgrowth [Unknown]
  - Hyperammonaemic encephalopathy [Recovering/Resolving]
